FAERS Safety Report 11847709 (Version 1)
Quarter: 2015Q4

REPORT INFORMATION
  Report Type: Spontaneous
  Country: FR (occurrence: FR)
  Receive Date: 20151217
  Receipt Date: 20151217
  Transmission Date: 20160305
  Serious: Yes (Life-Threatening, Hospitalization, Other)
  Sender: FDA-Public Use
  Company Number: FR-MEDTRONIC-1045625

PATIENT
  Age: 44 Year
  Sex: Male

DRUGS (2)
  1. BACLOFEN UNKNOWN [Suspect]
     Active Substance: BACLOFEN
     Indication: ALCOHOLISM
  2. CYMBALTA [Suspect]
     Active Substance: DULOXETINE HYDROCHLORIDE

REACTIONS (9)
  - Suicide attempt [Recovered/Resolved]
  - Agitation [Recovered/Resolved]
  - Coma [Recovered/Resolved]
  - Confusional state [Recovered/Resolved]
  - Aggression [Recovered/Resolved]
  - Alcohol poisoning [Recovered/Resolved]
  - Drug withdrawal syndrome [Recovered/Resolved]
  - Blood alcohol increased [Recovered/Resolved]
  - Toxicologic test abnormal [Recovered/Resolved]

NARRATIVE: CASE EVENT DATE: 20150914
